FAERS Safety Report 6973045-5 (Version None)
Quarter: 2010Q3

REPORT INFORMATION
  Report Type: 
  Country: None (occurrence: None)
  Receive Date: 20100824
  Receipt Date: 20100610
  Transmission Date: 20110219
  Serious: No
  Sender: FDA-Public Use
  Company Number: 309977

PATIENT
  Age: 79 Year
  Sex: Female

DRUGS (4)
  1. VICTOZA [Suspect]
     Indication: TYPE 2 DIABETES MELLITUS
     Dosage: SUBCUTANEOUS
     Route: 058
  2. VICTOZA [Suspect]
  3. HUMULIN N (INSULIN HUMAN) [Concomitant]
  4. HUMULIN R [Concomitant]

REACTIONS (4)
  - BLOOD GLUCOSE DECREASED [None]
  - NAUSEA [None]
  - TREMOR [None]
  - VOMITING [None]
